FAERS Safety Report 7007644-1 (Version None)
Quarter: 2010Q3

REPORT INFORMATION
  Report Type: 
  Country: None (occurrence: None)
  Receive Date: 20100922
  Receipt Date: 20100913
  Transmission Date: 20110219
  Serious: Yes (Disabling, Other)
  Sender: FDA-Public Use
  Company Number: US-PFIZER INC-2006032522

PATIENT
  Sex: Female
  Weight: 65.76 kg

DRUGS (2)
  1. XANAX [Suspect]
     Indication: PANIC ATTACK
     Dosage: 0.5 MG, 3X/DAY
     Dates: start: 19830101
  2. XANAX [Suspect]
     Dosage: 1 MG, 3X/DAY

REACTIONS (17)
  - BLOOD PRESSURE ABNORMAL [None]
  - BODY HEIGHT DECREASED [None]
  - BONE DISORDER [None]
  - BONE NEOPLASM [None]
  - BONE PAIN [None]
  - BRAIN NEOPLASM [None]
  - DISABILITY [None]
  - DRUG DEPENDENCE [None]
  - DRUG INTOLERANCE [None]
  - FEELING ABNORMAL [None]
  - FIBROMYALGIA [None]
  - HALLUCINATION [None]
  - INTERVERTEBRAL DISC DEGENERATION [None]
  - MYALGIA [None]
  - NEURALGIA [None]
  - OSTEOPOROSIS [None]
  - SKIN BURNING SENSATION [None]
